FAERS Safety Report 5756691-6 (Version None)
Quarter: 2008Q2

REPORT INFORMATION
  Report Type: 
  Country: None (occurrence: None)
  Receive Date: 20080529
  Receipt Date: 20080513
  Transmission Date: 20081010
  Serious: Yes (Death, Life-Threatening, Hospitalization)
  Sender: FDA-Public Use
  Company Number: DSA_29444_2007

PATIENT
  Sex: Male

DRUGS (13)
  1. CARDIZEM [Suspect]
     Indication: HYPERTENSION
     Dosage: DF
     Dates: end: 20060927
  2. DABIGATRAN ETEXILATE [Suspect]
     Indication: ATRIAL FIBRILLATION
     Dosage: 150 MG BID
     Dates: start: 20041011, end: 20060923
  3. DABIGATRAN ETEXILATE [Suspect]
     Indication: ATRIAL FIBRILLATION
     Dosage: 150 MG BID
     Dates: start: 20060925, end: 20060927
  4. NORVASC [Suspect]
     Indication: HYPERTENSION
     Dosage: DF
     Dates: end: 20060927
  5. DIOVANE [Suspect]
     Indication: HYPERTENSION
     Dates: end: 20060927
  6. K-TAB [Suspect]
     Indication: MINERAL SUPPLEMENTATION
     Dosage: DF
  7. GLUCOPHAGE [Concomitant]
  8. PREDNISONE TAB [Concomitant]
  9. ATENOLOL [Concomitant]
  10. LIPITOR [Concomitant]
  11. ALEVE [Concomitant]
  12. TORSEMIDE [Concomitant]
  13. DIURETICS [Concomitant]

REACTIONS (18)
  - ABDOMINAL PAIN UPPER [None]
  - ASTHENIA [None]
  - BRADYCARDIA [None]
  - CARDIO-RESPIRATORY ARREST [None]
  - CHRONIC OBSTRUCTIVE PULMONARY DISEASE [None]
  - COUGH [None]
  - DIABETIC GASTROPARESIS [None]
  - EROSIVE OESOPHAGITIS [None]
  - GALLBLADDER ENLARGEMENT [None]
  - GASTRIC DILATATION [None]
  - HAEMATEMESIS [None]
  - HYPERKALAEMIA [None]
  - HYPOTENSION [None]
  - MUSCULOSKELETAL CHEST PAIN [None]
  - PEPTIC ULCER HAEMORRHAGE [None]
  - PNEUMONIA [None]
  - RENAL FAILURE ACUTE [None]
  - UPPER GASTROINTESTINAL HAEMORRHAGE [None]
